FAERS Safety Report 11944770 (Version 1)
Quarter: 2016Q1

REPORT INFORMATION
  Report Type: Spontaneous
  Country: US (occurrence: US)
  Receive Date: 20160125
  Receipt Date: 20160125
  Transmission Date: 20160526
  Serious: Yes (Death, Hospitalization)
  Sender: FDA-Public Use
  Company Number: US-BEH-2016057871

PATIENT
  Age: 50 Year
  Sex: Female
  Weight: 139 kg

DRUGS (35)
  1. LIDOCAINE/PRILOCAINE [Concomitant]
  2. HUMALOG [Concomitant]
     Active Substance: INSULIN LISPRO
  3. KLONOPIN [Concomitant]
     Active Substance: CLONAZEPAM
  4. OXYGEN. [Concomitant]
     Active Substance: OXYGEN
  5. METOLAZONE. [Concomitant]
     Active Substance: METOLAZONE
  6. ABILIFY [Concomitant]
     Active Substance: ARIPIPRAZOLE
  7. PROVIGIL [Concomitant]
     Active Substance: MODAFINIL
  8. EFFEXOR XR [Concomitant]
     Active Substance: VENLAFAXINE HYDROCHLORIDE
  9. PULMICORT TURBUHALER [Concomitant]
     Active Substance: BUDESONIDE
  10. VITAMIN C [Concomitant]
     Active Substance: ASCORBIC ACID
  11. HIZENTRA [Suspect]
     Active Substance: HUMAN IMMUNOGLOBULIN G
     Indication: IMMUNODEFICIENCY COMMON VARIABLE
     Route: 058
  12. DIPHENHYDRAMINE. [Concomitant]
     Active Substance: DIPHENHYDRAMINE
  13. LIDOCAINE. [Concomitant]
     Active Substance: LIDOCAINE
  14. LANTUS [Concomitant]
     Active Substance: INSULIN GLARGINE
  15. EPIPEN [Concomitant]
     Active Substance: EPINEPHRINE
  16. CYCLOBENZAPRINE [Concomitant]
     Active Substance: CYCLOBENZAPRINE
  17. LORATADINE. [Concomitant]
     Active Substance: LORATADINE
  18. AMITRIPTYLINE [Concomitant]
     Active Substance: AMITRIPTYLINE
  19. MAGNESIUM [Concomitant]
     Active Substance: MAGNESIUM
  20. FERROUS FUMARATE [Concomitant]
     Active Substance: FERROUS FUMARATE
  21. FUROSEMIDE. [Concomitant]
     Active Substance: FUROSEMIDE
  22. ACETAMINOPHEN. [Concomitant]
     Active Substance: ACETAMINOPHEN
  23. LIPITOR [Concomitant]
     Active Substance: ATORVASTATIN CALCIUM
  24. LYRICA [Concomitant]
     Active Substance: PREGABALIN
  25. LISINOPRIL. [Concomitant]
     Active Substance: LISINOPRIL
  26. ROXICODONE [Concomitant]
     Active Substance: OXYCODONE HYDROCHLORIDE
  27. MUCINEX [Concomitant]
     Active Substance: GUAIFENESIN
  28. PREDNISONE. [Concomitant]
     Active Substance: PREDNISONE
  29. NYSTATIN-TRIAMCINOLONE [Concomitant]
  30. IPRATROPIUM BROMIDE. [Concomitant]
     Active Substance: IPRATROPIUM BROMIDE
  31. ALDACTONE [Concomitant]
     Active Substance: SPIRONOLACTONE
  32. ALLOPURINOL. [Concomitant]
     Active Substance: ALLOPURINOL
  33. FLUTICASONE [Concomitant]
     Active Substance: FLUTICASONE\FLUTICASONE PROPIONATE
  34. MULTIVITAMINS [Concomitant]
     Active Substance: VITAMINS
  35. DILTIAZEM [Concomitant]
     Active Substance: DILTIAZEM

REACTIONS (2)
  - Sepsis [Unknown]
  - Death [Fatal]

NARRATIVE: CASE EVENT DATE: 201512
